FAERS Safety Report 5448644-2 (Version None)
Quarter: 2007Q3

REPORT INFORMATION
  Report Type: 
  Country: None (occurrence: None)
  Receive Date: 20070907
  Receipt Date: 20070907
  Transmission Date: 20080115
  Serious: No
  Sender: FDA-Public Use
  Company Number: None

PATIENT
  Age: 60 Year
  Sex: Female

DRUGS (15)
  1. POSACONAZOLE [Suspect]
     Dosage: 200 MG PO TID
     Route: 048
  2. MICAFUNGIN [Concomitant]
  3. LEVOTHYROXINE SODIUM [Concomitant]
  4. PREDNISONE [Concomitant]
  5. BACTRIM [Concomitant]
  6. OMEPRAZOLE [Concomitant]
  7. MULTI-VITAMIN [Concomitant]
  8. CALCIUM WITH VITAMIN D [Concomitant]
  9. DARBEPOETIN [Concomitant]
  10. ASPIRIN [Concomitant]
  11. FOLIC ACID [Concomitant]
  12. ALENDRONATE SODIUM [Concomitant]
  13. MAGNESIUM OXIDE [Concomitant]
  14. BAKING SODA [Concomitant]
  15. METOPROLOL SUCCINATE [Concomitant]

REACTIONS (1)
  - VISION BLURRED [None]
